FAERS Safety Report 22807569 (Version 6)
Quarter: 2023Q4

REPORT INFORMATION
  Report Type: Report from Study
  Country: US (occurrence: US)
  Receive Date: 20230810
  Receipt Date: 20231026
  Transmission Date: 20240110
  Serious: No
  Sender: FDA-Public Use
  Company Number: US-002147023-NVSC2023US173221

PATIENT
  Sex: Female

DRUGS (11)
  1. ENTRESTO [Suspect]
     Active Substance: SACUBITRIL\VALSARTAN
     Indication: Product used for unknown indication
     Dosage: 1 DOSAGE FORM, BID (24/26 MG)
     Route: 065
     Dates: start: 20230626
  2. ENTRESTO [Suspect]
     Active Substance: SACUBITRIL\VALSARTAN
     Dosage: 1 DOSAGE FORM, BID (24/26 MG)
     Route: 048
     Dates: start: 20230919
  3. LOPRESSOR [Suspect]
     Active Substance: METOPROLOL TARTRATE
     Indication: Product used for unknown indication
     Dosage: UNK
     Route: 065
     Dates: start: 202308
  4. LOPRESSOR [Suspect]
     Active Substance: METOPROLOL TARTRATE
     Dosage: 12.5 MG, BID
     Route: 048
     Dates: start: 20230821, end: 20230920
  5. VITAMIN B12 [Concomitant]
     Active Substance: CYANOCOBALAMIN
     Indication: Product used for unknown indication
     Dosage: 1 DOSAGE FORM, QD
     Route: 048
  6. VITAMINS [Concomitant]
     Active Substance: VITAMINS
     Indication: Product used for unknown indication
     Dosage: 1 DOSAGE FORM, QD
     Route: 048
  7. JARDIANCE [Concomitant]
     Active Substance: EMPAGLIFLOZIN
     Indication: Product used for unknown indication
     Dosage: 1 DOSAGE FORM, QD (90 TABLETS)
     Route: 048
     Dates: start: 20230505, end: 20230728
  8. INSPRA [Concomitant]
     Active Substance: EPLERENONE
     Indication: Product used for unknown indication
     Dosage: 1 DOSAGE FORM, QD (90 TABLETS)
     Route: 048
     Dates: start: 20220721, end: 20231007
  9. ZESTRIL [Concomitant]
     Active Substance: LISINOPRIL
     Indication: Product used for unknown indication
     Dosage: 1 DOSAGE FORM, QD (30 TABLETS)
     Route: 048
     Dates: start: 20221228, end: 20230622
  10. MAGNESIUM [Concomitant]
     Active Substance: MAGNESIUM
     Indication: Product used for unknown indication
     Dosage: UNK
     Route: 048
     Dates: end: 20230308
  11. CAL-MAG [Concomitant]
     Indication: Product used for unknown indication
     Dosage: UNK
     Route: 048

REACTIONS (4)
  - Chest discomfort [Recovering/Resolving]
  - Fatigue [Not Recovered/Not Resolved]
  - Weight increased [Not Recovered/Not Resolved]
  - Weight fluctuation [Unknown]
